FAERS Safety Report 15809798 (Version 1)
Quarter: 2019Q1

REPORT INFORMATION
  Report Type: Spontaneous
  Country: US (occurrence: US)
  Receive Date: 20190111
  Receipt Date: 20190111
  Transmission Date: 20190417
  Serious: Yes (Other)
  Sender: FDA-Public Use
  Company Number: US-ROCHE-2086603

PATIENT

DRUGS (3)
  1. XELJANZ [Concomitant]
     Active Substance: TOFACITINIB CITRATE
     Indication: RHEUMATOID ARTHRITIS
  2. METHOTREXATE. [Concomitant]
     Active Substance: METHOTREXATE
     Route: 065
     Dates: start: 2016
  3. RITUXAN [Suspect]
     Active Substance: RITUXIMAB
     Indication: PRODUCT USED FOR UNKNOWN INDICATION
     Route: 065
     Dates: start: 2014, end: 2016

REACTIONS (2)
  - Tuberculosis [Unknown]
  - Therapeutic response decreased [Unknown]
